FAERS Safety Report 7777466-2 (Version None)
Quarter: 2011Q3

REPORT INFORMATION
  Report Type: 
  Country: None (occurrence: None)
  Receive Date: 20110926
  Receipt Date: 20110914
  Transmission Date: 20111222
  Serious: Yes (Other)
  Sender: FDA-Public Use
  Company Number: US-BAYER-201030911NA

PATIENT
  Age: 24 Year
  Sex: Female
  Weight: 95.692 kg

DRUGS (2)
  1. YAZ [Suspect]
     Indication: CONTRACEPTION
     Dosage: UNK
     Route: 048
     Dates: start: 20071001, end: 20080801
  2. YAZ [Suspect]
     Indication: ACNE

REACTIONS (5)
  - PAIN [None]
  - LUNG DISORDER [None]
  - INJURY [None]
  - CHEST PAIN [None]
  - PULMONARY EMBOLISM [None]
